FAERS Safety Report 11907455 (Version 4)
Quarter: 2020Q3

REPORT INFORMATION
  Report Type: Report from Study
  Country: FR (occurrence: FR)
  Receive Date: 20160111
  Receipt Date: 20180529
  Transmission Date: 20201104
  Serious: Yes (Hospitalization)
  Sender: FDA-Public Use
  Company Number: FR-JNJFOC-20160102295

PATIENT
  Age: 72 Year
  Sex: Female
  Weight: 62 kg

DRUGS (11)
  1. CAELYX [Suspect]
     Active Substance: DOXORUBICIN HYDROCHLORIDE
     Indication: OVARIAN CANCER
     Route: 042
     Dates: start: 20150323
  2. CAELYX [Suspect]
     Active Substance: DOXORUBICIN HYDROCHLORIDE
     Route: 042
  3. NITRIDERM [Concomitant]
     Active Substance: NITROGLYCERIN
     Route: 065
  4. ERYTHROMYCIN. [Concomitant]
     Active Substance: ERYTHROMYCIN
     Dosage: IN THE MORNING
     Route: 065
  5. VANCOMYCINE [Concomitant]
     Active Substance: VANCOMYCIN
     Indication: ANTIBIOTIC THERAPY
     Route: 042
     Dates: start: 20150606, end: 20150606
  6. VANCOMYCINE [Concomitant]
     Active Substance: VANCOMYCIN
     Indication: ANTIBIOTIC THERAPY
     Route: 042
  7. GENTAMYCINE [Concomitant]
     Active Substance: GENTAMICIN
     Indication: ANTIBIOTIC THERAPY
     Dosage: 300 MG TOTAL DOSE
     Route: 042
     Dates: start: 20150606, end: 20150606
  8. YONDELIS [Suspect]
     Active Substance: TRABECTEDIN
     Indication: OVARIAN CANCER
     Route: 042
     Dates: start: 20150323
  9. AUGMENTIN [Concomitant]
     Active Substance: AMOXICILLIN\CLAVULANATE POTASSIUM
     Indication: HYPERTHERMIA
     Route: 065
     Dates: start: 20150519, end: 20150526
  10. CIPROFLOXACIN. [Concomitant]
     Active Substance: CIPROFLOXACIN
     Indication: HYPERTHERMIA
     Route: 065
     Dates: start: 20150519, end: 20150526
  11. YONDELIS [Suspect]
     Active Substance: TRABECTEDIN
     Route: 042

REACTIONS (3)
  - Pyrexia [Recovered/Resolved]
  - Staphylococcal infection [Recovered/Resolved]
  - Cough [Unknown]

NARRATIVE: CASE EVENT DATE: 201505
